FAERS Safety Report 9437042 (Version 1)
Quarter: 2013Q3

REPORT INFORMATION
  Report Type: Spontaneous
  Country: CN (occurrence: CN)
  Receive Date: 20130802
  Receipt Date: 20130802
  Transmission Date: 20140515
  Serious: Yes (Other)
  Sender: FDA-Public Use
  Company Number: CN-PFIZER INC-2013220446

PATIENT
  Age: 48 Year
  Sex: Female
  Weight: 49 kg

DRUGS (4)
  1. PHARMORUBICIN [Suspect]
     Indication: OSTEOSARCOMA
     Dosage: 40 MG, 1X/DAY
     Route: 042
     Dates: start: 20120809, end: 20120811
  2. METHOTREXATE [Suspect]
     Indication: OSTEOSARCOMA
     Dosage: UNK
     Dates: start: 20120725, end: 20120811
  3. AZITHROMYCIN [Suspect]
     Indication: OSTEOSARCOMA
     Dosage: UNK
     Dates: start: 20120725, end: 20120811
  4. CISPLATIN [Suspect]
     Indication: OSTEOSARCOMA
     Dosage: UNK
     Dates: start: 20120725, end: 20120811

REACTIONS (3)
  - Bone marrow failure [Not Recovered/Not Resolved]
  - Hepatic function abnormal [Not Recovered/Not Resolved]
  - Off label use [Unknown]
